FAERS Safety Report 8958365 (Version 2)
Quarter: 2013Q4

REPORT INFORMATION
  Report Type: Spontaneous
  Country: CA (occurrence: CA)
  Receive Date: 20121210
  Receipt Date: 20131018
  Transmission Date: 20140711
  Serious: Yes (Death, Hospitalization)
  Sender: FDA-Public Use
  Company Number: CA-GLAXOSMITHKLINE-A1003964A

PATIENT
  Age: 60 Year
  Sex: Female
  Weight: 64.1 kg

DRUGS (22)
  1. FLOLAN [Suspect]
     Indication: CONNECTIVE TISSUE DISORDER
     Dosage: 12MG CONTINUOUS
     Route: 042
     Dates: start: 20040930
  2. FLOLAN DILUENT [Suspect]
     Indication: CONNECTIVE TISSUE DISORDER
     Route: 065
  3. LACTULOSE [Concomitant]
  4. CENTRUM [Concomitant]
  5. PANTOPRAZOLE [Concomitant]
     Dosage: 40MG PER DAY
  6. CALCIUM [Concomitant]
     Dosage: 500MG TWICE PER DAY
  7. VITAMIN D [Concomitant]
     Dosage: 10000IU WEEKLY
  8. HYDROMORPH CONTIN [Concomitant]
     Dosage: 24MG TWICE PER DAY
  9. LYRICA [Concomitant]
     Dosage: 150MG TWICE PER DAY
  10. ATORVASTATIN [Concomitant]
     Dosage: 1TAB PER DAY
  11. DOCUSATE [Concomitant]
     Dosage: 2TAB TWICE PER DAY
  12. FERROUS FUMARATE [Concomitant]
     Dosage: 300MG THREE TIMES PER DAY
  13. CITALOPRAM [Concomitant]
  14. FUROSEMIDE [Concomitant]
     Dosage: 80MG PER DAY
  15. SYNTHROID [Concomitant]
     Dosage: .388MG PER DAY
  16. OXYGEN [Concomitant]
     Dosage: 2.5L CONTINUOUS
  17. ADVIL [Concomitant]
     Dosage: 200MG AS REQUIRED
  18. DILAUDID [Concomitant]
     Dosage: 4MG SEE DOSAGE TEXT
  19. ATIVAN [Concomitant]
     Dosage: .5MG AS REQUIRED
  20. NASONEX [Concomitant]
  21. METFORMIN HYDROCHLORIDE [Concomitant]
  22. GLICLAZIDE [Concomitant]

REACTIONS (2)
  - Hip surgery [Not Recovered/Not Resolved]
  - Death [Fatal]
